FAERS Safety Report 14007496 (Version 2)
Quarter: 2017Q3

REPORT INFORMATION
  Report Type: Spontaneous
  Country: US (occurrence: US)
  Receive Date: 20170925
  Receipt Date: 20170929
  Transmission Date: 20171128
  Serious: No
  Sender: FDA-Public Use
  Company Number: US-PFIZER INC-2017409778

PATIENT
  Sex: Male
  Weight: 88.45 kg

DRUGS (1)
  1. RAPAMUNE [Suspect]
     Active Substance: SIROLIMUS
     Indication: LIVER TRANSPLANT
     Dosage: 5 MG, 1X/DAY (5 TABLETS ONCE A DAY TO EQUAL THE 5 MG DOSE)
     Route: 048

REACTIONS (1)
  - Product use in unapproved indication [Unknown]
